FAERS Safety Report 7628023-X (Version None)
Quarter: 2011Q3

REPORT INFORMATION
  Report Type: 
  Country: None (occurrence: None)
  Receive Date: 20110722
  Receipt Date: 20110712
  Transmission Date: 20111222
  Serious: No
  Sender: FDA-Public Use
  Company Number: US-BIOGENIDEC-2011BI015151

PATIENT
  Age: 48 Year
  Sex: Female

DRUGS (3)
  1. TYSABRI [Suspect]
     Indication: MULTIPLE SCLEROSIS
     Route: 042
     Dates: start: 20100219
  2. AVONEX [Concomitant]
     Route: 030
     Dates: start: 20080407
  3. AVONEX [Concomitant]
     Indication: MULTIPLE SCLEROSIS
     Route: 030
     Dates: start: 20100201

REACTIONS (5)
  - MULTIPLE SCLEROSIS [None]
  - RESPIRATORY TRACT INFECTION [None]
  - HEADACHE [None]
  - FATIGUE [None]
  - COGNITIVE DISORDER [None]
